FAERS Safety Report 17963895 (Version 1)
Quarter: 2020Q2

REPORT INFORMATION
  Report Type: Spontaneous
  Country: US (occurrence: US)
  Receive Date: 20200630
  Receipt Date: 20200630
  Transmission Date: 20200714
  Serious: No
  Sender: FDA-Public Use
  Company Number: US-SHIRE-US202010643

PATIENT
  Sex: Male

DRUGS (2)
  1. GATTEX [Suspect]
     Active Substance: TEDUGLUTIDE\WATER
     Dosage: 0.70 MILLIGRAM, 1X/DAY:QD
     Route: 058
     Dates: start: 20200131
  2. GATTEX [Suspect]
     Active Substance: TEDUGLUTIDE\WATER
     Indication: SHORT-BOWEL SYNDROME
     Dosage: 0.72 MILLIGRAM, 1X/DAY:QD
     Route: 058
     Dates: start: 20200120

REACTIONS (2)
  - Injection site reaction [Recovered/Resolved]
  - Product dose omission [Recovered/Resolved]
